FAERS Safety Report 9262424 (Version 1)
Quarter: 2013Q2

REPORT INFORMATION
  Report Type: Spontaneous
  Country: US (occurrence: US)
  Receive Date: 20130430
  Receipt Date: 20130430
  Transmission Date: 20140414
  Serious: No
  Sender: FDA-Public Use
  Company Number: US-009507513-1304USA017385

PATIENT
  Sex: Male

DRUGS (11)
  1. JANUVIA [Suspect]
     Dosage: 100 MG, QD
     Route: 048
  2. PRILOSEC [Concomitant]
  3. GLIPIZIDE [Concomitant]
  4. COLCRYS [Concomitant]
  5. SINGULAIR [Concomitant]
  6. PROMETHAZINE HYDROCHLORIDE [Concomitant]
  7. GLIMEPIRIDE [Concomitant]
  8. ALLOPURINOL [Concomitant]
  9. MICARDIS [Concomitant]
  10. XYZAL [Concomitant]
  11. SYNTHROID [Concomitant]

REACTIONS (2)
  - Abdominal pain upper [Unknown]
  - Vomiting [Unknown]
